FAERS Safety Report 19856124 (Version 1)
Quarter: 2021Q3

REPORT INFORMATION
  Report Type: Spontaneous
  Country: US (occurrence: US)
  Receive Date: 20210916
  Receipt Date: 20210916
  Transmission Date: 20211014
  Serious: No
  Sender: FDA-Public Use
  Company Number: None

PATIENT
  Sex: 0

DRUGS (1)
  1. TRIAMCINOLONE CREAM [Suspect]
     Active Substance: TRIAMCINOLONE

REACTIONS (2)
  - Steroid withdrawal syndrome [None]
  - Weight increased [None]
